FAERS Safety Report 24076887 (Version 1)
Quarter: 2024Q3

REPORT INFORMATION
  Report Type: Spontaneous
  Country: US (occurrence: US)
  Receive Date: 20240711
  Receipt Date: 20240711
  Transmission Date: 20241016
  Serious: No
  Sender: PIERRE FABRE MEDICAMENT
  Company Number: US-PFM-2023-05635

PATIENT
  Sex: Female
  Weight: 13.6 kg

DRUGS (4)
  1. HEMANGEOL [Suspect]
     Active Substance: PROPRANOLOL HYDROCHLORIDE
     Indication: Haemangioma
     Dosage: 1.5 ML, BID (2/DAY)
     Route: 048
     Dates: start: 20231006
  2. HEMANGEOL [Suspect]
     Active Substance: PROPRANOLOL HYDROCHLORIDE
     Dosage: 3 ML, BID (2/DAY)
     Route: 048
  3. HEMANGEOL [Suspect]
     Active Substance: PROPRANOLOL HYDROCHLORIDE
     Dosage: 3.5 ML, BID (2/DAY)
     Route: 048
  4. HEMANGEOL [Suspect]
     Active Substance: PROPRANOLOL HYDROCHLORIDE
     Dosage: 3 ML, ONCE MORNING DOSE
     Route: 048

REACTIONS (8)
  - Haemangioma [Unknown]
  - Condition aggravated [Unknown]
  - Nasal congestion [Unknown]
  - Rhinorrhoea [Unknown]
  - Poor quality sleep [Unknown]
  - Wheezing [Unknown]
  - Intentional product use issue [Unknown]
  - Incorrect dose administered [Unknown]
